FAERS Safety Report 6542484-9 (Version None)
Quarter: 2010Q1

REPORT INFORMATION
  Report Type: 
  Country: None (occurrence: None)
  Receive Date: 20100119
  Receipt Date: 20100112
  Transmission Date: 20100710
  Serious: Yes (Other)
  Sender: FDA-Public Use
  Company Number: GB-TEVA-205905ISR

PATIENT
  Age: 13 Year
  Sex: Male

DRUGS (5)
  1. PREDNISOLONE [Suspect]
     Indication: HEART TRANSPLANT
  2. DOXORUBICIN HCL [Suspect]
  3. ETOPOSIDE [Suspect]
  4. METHOTREXATE [Suspect]
     Route: 037
  5. TACROLIMUS [Suspect]
     Indication: HEART TRANSPLANT

REACTIONS (8)
  - BACTERAEMIA [None]
  - BACTERIAL SEPSIS [None]
  - BURKITT'S LYMPHOMA [None]
  - DEVICE RELATED INFECTION [None]
  - MUSCLE CONTRACTIONS INVOLUNTARY [None]
  - PNEUMOCYSTIS JIROVECI PNEUMONIA [None]
  - STAPHYLOCOCCAL INFECTION [None]
  - TIC [None]
